FAERS Safety Report 12964745 (Version 1)
Quarter: 2016Q4

REPORT INFORMATION
  Report Type: Spontaneous
  Country: US (occurrence: US)
  Receive Date: 20161122
  Receipt Date: 20161122
  Transmission Date: 20170207
  Serious: Yes (Congenital Anomaly)
  Sender: FDA-Public Use
  Company Number: US-SAGENTPRD-2016-US-000058

PATIENT
  Sex: 0
  Weight: .7 kg

DRUGS (1)
  1. CAFFEINE CITRATE ORAL SOLUTION [Suspect]
     Active Substance: CAFFEINE CITRATE
     Dosage: UNKNOWN

REACTIONS (2)
  - Femur fracture [Not Recovered/Not Resolved]
  - Low birth weight baby [Not Recovered/Not Resolved]
